FAERS Safety Report 23521773 (Version 1)
Quarter: 2024Q1

REPORT INFORMATION
  Report Type: Spontaneous
  Country: TR (occurrence: TR)
  Receive Date: 20240214
  Receipt Date: 20240214
  Transmission Date: 20240409
  Serious: Yes (Other)
  Sender: FDA-Public Use
  Company Number: TR-002147023-NVSC2024TR030007

PATIENT
  Age: 64 Year
  Sex: Female

DRUGS (1)
  1. TRILEPTAL [Suspect]
     Active Substance: OXCARBAZEPINE
     Indication: Epilepsy
     Dosage: UNK, BID (IN THE MORNING AND EVENING, FOR 40 YEARS)
     Route: 065

REACTIONS (4)
  - Seizure [Unknown]
  - Dementia Alzheimer^s type [Unknown]
  - Muscular weakness [Unknown]
  - Product supply issue [Unknown]
